FAERS Safety Report 9639270 (Version 1)
Quarter: 2013Q4

REPORT INFORMATION
  Report Type: Report from Study
  Country: CN (occurrence: CN)
  Receive Date: 20131022
  Receipt Date: 20131022
  Transmission Date: 20140711
  Serious: Yes (Hospitalization)
  Sender: FDA-Public Use
  Company Number: CN-B.I. PHARMACEUTICALS,INC./RIDGEFIELD-2013-BI-32517CS

PATIENT
  Age: 45 Year
  Sex: Female
  Weight: 58 kg

DRUGS (1)
  1. AFATINIB [Suspect]
     Indication: NEOPLASM MALIGNANT
     Dosage: 40 MG
     Route: 048
     Dates: start: 20130507, end: 20130905

REACTIONS (1)
  - Pleural effusion [Not Recovered/Not Resolved]
